FAERS Safety Report 4338975-1 (Version None)
Quarter: 2004Q2

REPORT INFORMATION
  Report Type: 
  Country: None (occurrence: None)
  Receive Date: 20040409
  Receipt Date: 20040326
  Transmission Date: 20050107
  Serious: Yes (Hospitalization)
  Sender: FDA-Public Use
  Company Number: SUSI-2004-00184

PATIENT
  Age: 15 Year
  Sex: Male

DRUGS (1)
  1. ADDERALL XR 10 [Suspect]
     Indication: ATTENTION DEFICIT/HYPERACTIVITY DISORDER
     Dosage: 40 MG PER DAY
     Dates: start: 20040306

REACTIONS (6)
  - ACUTE CORONARY SYNDROME [None]
  - ARTERIOSPASM CORONARY [None]
  - BLOOD CREATINE PHOSPHOKINASE INCREASED [None]
  - DIZZINESS [None]
  - DRUG SCREEN POSITIVE [None]
  - ELECTROCARDIOGRAM ST-T SEGMENT ELEVATION [None]
